FAERS Safety Report 22667001 (Version 3)
Quarter: 2024Q1

REPORT INFORMATION
  Report Type: Spontaneous
  Country: AU (occurrence: AU)
  Receive Date: 20230704
  Receipt Date: 20240322
  Transmission Date: 20240410
  Serious: Yes (Hospitalization, Other)
  Sender: FDA-Public Use
  Company Number: AU-CIPLA LTD.-2023AU03447

PATIENT

DRUGS (2)
  1. LEVETIRACETAM [Suspect]
     Active Substance: LEVETIRACETAM
     Indication: Seizure
     Dosage: 2 GRAM, QD
     Route: 048
     Dates: start: 201712
  2. ALECENSA [Suspect]
     Active Substance: ALECTINIB HYDROCHLORIDE
     Indication: Non-small cell lung cancer metastatic
     Dosage: 1200 MILLIGRAM, QD
     Route: 048
     Dates: start: 20180223, end: 20180330

REACTIONS (6)
  - Deep vein thrombosis [Recovered/Resolved]
  - Device related infection [Recovered/Resolved]
  - Herpes simplex [Recovered/Resolved]
  - Pseudomonas infection [Recovered/Resolved]
  - Haematological infection [Recovered/Resolved]
  - Toxic epidermal necrolysis [Recovered/Resolved]

NARRATIVE: CASE EVENT DATE: 20180330
